FAERS Safety Report 9472104 (Version 1)
Quarter: 2013Q3

REPORT INFORMATION
  Report Type: Spontaneous
  Country: FR (occurrence: FR)
  Receive Date: 20130823
  Receipt Date: 20130823
  Transmission Date: 20140515
  Serious: Yes (Congenital Anomaly)
  Sender: FDA-Public Use
  Company Number: FR-009507513-1308FRA006214

PATIENT
  Sex: Female

DRUGS (5)
  1. NORSET [Suspect]
     Indication: DEPRESSION
     Dosage: 15 MG, QD
     Route: 064
  2. DEPAMIDE [Suspect]
     Indication: AFFECTIVE DISORDER
     Dosage: 300 MG, QD
     Route: 064
  3. XANAX [Suspect]
     Indication: ANXIETY
     Dosage: 0.25 MG, QD
     Route: 064
  4. MEPRONIZINE [Suspect]
     Indication: INSOMNIA
     Dosage: 1 DF, QD
     Route: 064
  5. DUPHASTON [Concomitant]
     Route: 064

REACTIONS (2)
  - Talipes [Unknown]
  - Foetal exposure during pregnancy [Not Recovered/Not Resolved]
